FAERS Safety Report 16740662 (Version 1)
Quarter: 2019Q3

REPORT INFORMATION
  Report Type: Spontaneous
  Country: US (occurrence: US)
  Receive Date: 20190709
  Receipt Date: 20190709
  Transmission Date: 20191005
  Serious: Yes (Hospitalization)
  Sender: FDA-Public Use
  Company Number: None

PATIENT
  Age: 19 Year
  Sex: Female

DRUGS (11)
  1. VALTREX [Concomitant]
     Active Substance: VALACYCLOVIR HYDROCHLORIDE
  2. ZYRTEC [Concomitant]
     Active Substance: CETIRIZINE HYDROCHLORIDE
  3. TADALAFIL 20MG TAB [Suspect]
     Active Substance: TADALAFIL
     Indication: PULMONARY ARTERIAL HYPERTENSION
     Dosage: ?2  TABS Q BS PO
     Route: 048
     Dates: start: 20181117
  4. ENOXAPARIN INJ [Concomitant]
     Active Substance: ENOXAPARIN SODIUM
  5. SERTRALINE [Concomitant]
     Active Substance: SERTRALINE HYDROCHLORIDE
  6. NEXIUM [Concomitant]
     Active Substance: ESOMEPRAZOLE MAGNESIUM
  7. TAMSULOSIN [Concomitant]
     Active Substance: TAMSULOSIN
  8. FUROSEMIDE TAB [Concomitant]
  9. WARFARIN [Concomitant]
     Active Substance: WARFARIN
  10. CEFIXIME CAP [Concomitant]
  11. TRIAMCINOLON  CRE [Concomitant]

REACTIONS (1)
  - Heart valve operation [None]

NARRATIVE: CASE EVENT DATE: 20190705
